FAERS Safety Report 8928694 (Version 1)
Quarter: 2012Q4

REPORT INFORMATION
  Report Type: 
  Country: US (occurrence: US)
  Receive Date: 20121128
  Receipt Date: 20121128
  Transmission Date: 20130627
  Serious: No
  Sender: FDA-Public Use
  Company Number: US-PFIZER INC-2012295229

PATIENT
  Sex: Female

DRUGS (3)
  1. VIBRAMYCIN [Suspect]
  2. ERYTHROMYCIN [Suspect]
  3. STADOL [Suspect]

REACTIONS (1)
  - Drug hypersensitivity [Unknown]
